FAERS Safety Report 11826265 (Version 6)
Quarter: 2019Q1

REPORT INFORMATION
  Report Type: Report from Study
  Country: US (occurrence: US)
  Receive Date: 20151211
  Receipt Date: 20190327
  Transmission Date: 20190417
  Serious: No
  Sender: FDA-Public Use
  Company Number: PHHY2015US157808

PATIENT
  Age: 52 Year
  Sex: Male

DRUGS (2)
  1. SOLU-MEDROL [Concomitant]
     Active Substance: METHYLPREDNISOLONE SODIUM SUCCINATE
     Indication: MULTIPLE SCLEROSIS RELAPSE
     Dosage: UNK
     Route: 042
     Dates: start: 20150625, end: 20150627
  2. GILENYA [Suspect]
     Active Substance: FINGOLIMOD HYDROCHLORIDE
     Indication: MULTIPLE SCLEROSIS
     Dosage: QD
     Route: 048

REACTIONS (7)
  - Fatigue [Recovered/Resolved]
  - Electrocardiogram abnormal [Recovered/Resolved]
  - Ataxia [Recovered/Resolved]
  - Vision blurred [Not Recovered/Not Resolved]
  - Dysarthria [Recovered/Resolved]
  - Dizziness [Not Recovered/Not Resolved]
  - Tremor [Recovered/Resolved]

NARRATIVE: CASE EVENT DATE: 20150601
